FAERS Safety Report 6105397-2 (Version None)
Quarter: 2009Q1

REPORT INFORMATION
  Report Type: 
  Country: None (occurrence: None)
  Receive Date: 20090306
  Receipt Date: 20090302
  Transmission Date: 20090719
  Serious: Yes (Other)
  Sender: FDA-Public Use
  Company Number: A0770879A

PATIENT
  Age: 54 Year
  Sex: Male

DRUGS (2)
  1. ALLI [Suspect]
     Route: 048
     Dates: start: 20080401, end: 20090201
  2. CALCIUM [Concomitant]

REACTIONS (5)
  - BLOOD URINE PRESENT [None]
  - INTENTIONAL DRUG MISUSE [None]
  - NEPHROLITHIASIS [None]
  - RENAL PAIN [None]
  - THROMBOSIS [None]
